FAERS Safety Report 4870360-6 (Version None)
Quarter: 2006Q1

REPORT INFORMATION
  Report Type: 
  Country: None (occurrence: None)
  Receive Date: 20060103
  Receipt Date: 20051124
  Transmission Date: 20060701
  Serious: Yes (Hospitalization)
  Sender: FDA-Public Use
  Company Number: DK-BOEHRINGER INGELHEIM PHARMACEUTICALS, INC.-2005-DE-05216GD

PATIENT
  Sex: Female

DRUGS (5)
  1. NEVIRAPINE [Suspect]
     Indication: HIV TEST POSITIVE
     Dates: start: 20031104, end: 20031118
  2. NEVIRAPINE [Suspect]
     Dates: start: 20031118, end: 20031129
  3. COMBIVIR [Concomitant]
     Indication: HIV TEST POSITIVE
     Dates: start: 19961113
  4. INDINAVIR [Concomitant]
     Indication: HIV TEST POSITIVE
     Dates: end: 20031104
  5. STEROIDS [Concomitant]

REACTIONS (15)
  - ABDOMINAL PAIN [None]
  - ANOREXIA [None]
  - CHILLS [None]
  - COAGULOPATHY [None]
  - EOSINOPHILIA [None]
  - HEPATIC ENCEPHALOPATHY [None]
  - HEPATOTOXICITY [None]
  - JAUNDICE [None]
  - LEUKOCYTOSIS [None]
  - MALAISE [None]
  - PANCREATITIS [None]
  - PYREXIA [None]
  - RASH MACULO-PAPULAR [None]
  - STEVENS-JOHNSON SYNDROME [None]
  - THROMBOCYTOPENIA [None]
